FAERS Safety Report 12942692 (Version 1)
Quarter: 2016Q4

REPORT INFORMATION
  Report Type: Spontaneous
  Country: US (occurrence: US)
  Receive Date: 20161114
  Receipt Date: 20161114
  Transmission Date: 20170207
  Serious: No
  Sender: FDA-Public Use
  Company Number: US-TEVA-707687USA

PATIENT
  Age: 43 Year
  Sex: Male
  Weight: 77.18 kg

DRUGS (1)
  1. PROAIR HFA [Suspect]
     Active Substance: ALBUTEROL SULFATE
     Indication: ASTHMA
     Dosage: FIVE PUFFS
     Route: 055

REACTIONS (2)
  - Intentional product use issue [Unknown]
  - Breath alcohol test positive [Recovered/Resolved]

NARRATIVE: CASE EVENT DATE: 201507
